FAERS Safety Report 8632462 (Version 3)
Quarter: 2012Q4

REPORT INFORMATION
  Report Type: 
  Country: US (occurrence: US)
  Receive Date: 20120625
  Receipt Date: 20120911
  Transmission Date: 20130627
  Serious: Yes (Hospitalization)
  Sender: FDA-Public Use
  Company Number: US-BAYER-2012-060844

PATIENT
  Age: 38 Year
  Sex: Female
  Weight: 58.96 kg

DRUGS (7)
  1. YAZ [Suspect]
     Indication: CONTRACEPTION
     Dosage: UNK
     Dates: start: 20060601, end: 20060913
  2. YAZ [Suspect]
     Indication: PREMENSTRUAL SYNDROME
  3. YAZ [Suspect]
     Indication: PREMENSTRUAL SYNDROME
  4. YASMIN [Suspect]
  5. ZOLOFT [Concomitant]
     Indication: DEPRESSION
     Dosage: UNK
     Dates: start: 20041008, end: 20060629
  6. NUTRITIONAL SUPPLEMENT [Concomitant]
     Dosage: 1 pill daily
  7. CENTRUM [Concomitant]
     Dosage: 1 pill daily

REACTIONS (8)
  - Pulmonary embolism [None]
  - Pulmonary infarction [None]
  - Atelectasis [None]
  - Injury [None]
  - Pain [None]
  - Dyspnoea [None]
  - Chest pain [None]
  - Pleuritic pain [None]
